FAERS Safety Report 14663383 (Version 2)
Quarter: 2018Q1

REPORT INFORMATION
  Report Type: Spontaneous
  Country: US (occurrence: US)
  Receive Date: 20180321
  Receipt Date: 20180329
  Transmission Date: 20180509
  Serious: No
  Sender: FDA-Public Use
  Company Number: US-PFIZER INC-2018112109

PATIENT
  Age: 91 Year
  Sex: Male
  Weight: 88.45 kg

DRUGS (2)
  1. LATANOPROST. [Suspect]
     Active Substance: LATANOPROST
     Indication: GLAUCOMA
     Dosage: 2 GTT, DAILY(ONE DROP IN EACH EYE BEFORE BED DAILY)
     Dates: start: 2013, end: 2018
  2. LATANOPROST. [Suspect]
     Active Substance: LATANOPROST
     Dosage: UNK
     Dates: end: 2018

REACTIONS (7)
  - Ocular hyperaemia [Recovering/Resolving]
  - Eye irritation [Recovered/Resolved]
  - Foreign body sensation in eyes [Unknown]
  - Vision blurred [Unknown]
  - Dry eye [Recovered/Resolved]
  - Eye pain [Recovering/Resolving]
  - Eye pruritus [Recovering/Resolving]

NARRATIVE: CASE EVENT DATE: 201709
